FAERS Safety Report 14257006 (Version 2)
Quarter: 2017Q4

REPORT INFORMATION
  Report Type: Spontaneous
  Country: US (occurrence: US)
  Receive Date: 20171206
  Receipt Date: 20171213
  Transmission Date: 20180321
  Serious: No
  Sender: FDA-Public Use
  Company Number: US-BIOGEN-2017BI00491222

PATIENT
  Sex: Female

DRUGS (3)
  1. PLEGRIDY [Suspect]
     Active Substance: PEGINTERFERON BETA-1A
     Indication: MULTIPLE SCLEROSIS
     Route: 065
  2. PLEGRIDY [Suspect]
     Active Substance: PEGINTERFERON BETA-1A
     Dosage: 63 MCG DAY ONE THEN 94 MCG DAY 15
     Route: 058
     Dates: start: 20171114
  3. PLEGRIDY [Suspect]
     Active Substance: PEGINTERFERON BETA-1A
     Dosage: 63 MCG DAY ONE THEN 94 MCG DAY 15
     Route: 058
     Dates: start: 20171114

REACTIONS (2)
  - Drug ineffective [Unknown]
  - Influenza like illness [Not Recovered/Not Resolved]
